FAERS Safety Report 4289533-9 (Version None)
Quarter: 2004Q1

REPORT INFORMATION
  Report Type: 
  Country: None (occurrence: None)
  Receive Date: 20040203
  Receipt Date: 20021227
  Transmission Date: 20041129
  Serious: Yes (Other)
  Sender: FDA-Public Use
  Company Number: 200227861BWH

PATIENT
  Age: 46 Year
  Sex: Male

DRUGS (7)
  1. AVELOX [Suspect]
     Indication: ASTHMA
     Dosage: 400 MG, QD, ORAL
     Route: 048
     Dates: start: 20021227
  2. ALBUTEROL [Concomitant]
  3. DECADRON [Concomitant]
  4. IBUPROFEN [Concomitant]
  5. PANMIST-DM [Concomitant]
  6. HYDROMET [Concomitant]
  7. ROBITUSSIN [Concomitant]

REACTIONS (1)
  - ANAPHYLACTIC SHOCK [None]
